FAERS Safety Report 8384208-9 (Version None)
Quarter: 2012Q2

REPORT INFORMATION
  Report Type: 
  Country: None (occurrence: None)
  Receive Date: 20120524
  Receipt Date: 20120518
  Transmission Date: 20120825
  Serious: Yes (Other)
  Sender: FDA-Public Use
  Company Number: US-PFIZER INC-2012122032

PATIENT

DRUGS (1)
  1. ATORVASTATIN CALCIUM [Suspect]
     Dosage: 40 MG, UNK

REACTIONS (2)
  - LOW DENSITY LIPOPROTEIN INCREASED [None]
  - LABORATORY TEST ABNORMAL [None]
